FAERS Safety Report 15488352 (Version 1)
Quarter: 2018Q4

REPORT INFORMATION
  Report Type: Spontaneous
  Country: US (occurrence: US)
  Receive Date: 20181003
  Receipt Date: 20181003
  Transmission Date: 20190205
  Serious: Yes (Life-Threatening, Hospitalization)
  Sender: FDA-Public Use
  Company Number: None

PATIENT
  Age: 61 Year
  Sex: Female

DRUGS (1)
  1. METHOTREXATE. [Suspect]
     Active Substance: METHOTREXATE
     Indication: MYOSITIS
     Route: 048
     Dates: start: 20170606, end: 20180726

REACTIONS (3)
  - Pneumonia [None]
  - Pulmonary fibrosis [None]
  - Respiratory failure [None]

NARRATIVE: CASE EVENT DATE: 20180713
